FAERS Safety Report 8334430-2 (Version None)
Quarter: 2012Q2

REPORT INFORMATION
  Report Type: 
  Country: None (occurrence: None)
  Receive Date: 20120503
  Receipt Date: 20111018
  Transmission Date: 20120825
  Serious: No
  Sender: FDA-Public Use
  Company Number: US-BAUSCH-2011BL007151

PATIENT
  Age: 36 Year
  Sex: Female

DRUGS (2)
  1. LOTEMAX [Suspect]
     Indication: INFLAMMATION
     Route: 047
     Dates: start: 20111014, end: 20111015
  2. REFRESH [Concomitant]

REACTIONS (7)
  - EYELID OEDEMA [None]
  - OCULAR HYPERAEMIA [None]
  - EYE IRRITATION [None]
  - SWELLING FACE [None]
  - EYE PRURITUS [None]
  - DIZZINESS [None]
  - DYSPNOEA [None]
